FAERS Safety Report 6385419-4 (Version None)
Quarter: 2009Q4

REPORT INFORMATION
  Report Type: 
  Country: None (occurrence: None)
  Receive Date: 20091002
  Receipt Date: 20080905
  Transmission Date: 20100525
  Serious: No
  Sender: FDA-Public Use
  Company Number: US-ASTRAZENECA-2008UW18417

PATIENT
  Age: 46 Year
  Sex: Female

DRUGS (3)
  1. ARIMIDEX [Suspect]
     Route: 048
  2. ARIMIDEX [Suspect]
     Route: 048
  3. LEVOTHYROXINE SODIUM [Concomitant]

REACTIONS (4)
  - ANXIETY [None]
  - DIARRHOEA [None]
  - EYE DISORDER [None]
  - NAUSEA [None]
